FAERS Safety Report 24259684 (Version 1)
Quarter: 2024Q3

REPORT INFORMATION
  Report Type: Report from Study
  Country: BR (occurrence: BR)
  Receive Date: 20240828
  Receipt Date: 20240828
  Transmission Date: 20241017
  Serious: Yes (Hospitalization, Other)
  Sender: JOHNSON AND JOHNSON
  Company Number: BR-JNJFOC-20240867359

PATIENT
  Age: 54 Year
  Sex: Female
  Weight: 99 kg

DRUGS (2)
  1. INFLIXIMAB [Suspect]
     Active Substance: INFLIXIMAB
     Indication: Crohn^s disease
     Route: 065
     Dates: start: 20150722, end: 20210302
  2. INFLIXIMAB [Suspect]
     Active Substance: INFLIXIMAB
     Indication: Crohn^s disease
     Route: 065

REACTIONS (10)
  - Skin cancer [Unknown]
  - Infection [Unknown]
  - Intestinal operation [Unknown]
  - Arthralgia [Unknown]
  - Abdominal pain [Unknown]
  - Pyrexia [Unknown]
  - Malaise [Unknown]
  - Neck mass [Unknown]
  - Faecal calprotectin abnormal [Unknown]
  - Off label use [Unknown]
